FAERS Safety Report 13665606 (Version 1)
Quarter: 2017Q2

REPORT INFORMATION
  Report Type: Spontaneous
  Country: FR (occurrence: FR)
  Receive Date: 20170619
  Receipt Date: 20170619
  Transmission Date: 20170830
  Serious: Yes (Other)
  Sender: FDA-Public Use
  Company Number: FR-BAYER-2017-113881

PATIENT
  Age: 38 Year
  Sex: Female

DRUGS (1)
  1. MIRENA [Suspect]
     Active Substance: LEVONORGESTREL
     Indication: CONTRACEPTION
     Dosage: 20 MCG/24HR, CONT
     Route: 015
     Dates: start: 20150502, end: 20151212

REACTIONS (14)
  - Diarrhoea [Not Recovered/Not Resolved]
  - Myalgia [Recovering/Resolving]
  - Eye oedema [Recovering/Resolving]
  - Tinnitus [Recovering/Resolving]
  - Hypotension [Recovering/Resolving]
  - Occipital neuralgia [Recovering/Resolving]
  - Nausea [Recovering/Resolving]
  - Pancreatitis [Recovering/Resolving]
  - Headache [Recovering/Resolving]
  - Depression [Recovering/Resolving]
  - Arthralgia [Recovering/Resolving]
  - Tachycardia [Recovering/Resolving]
  - Insomnia [Recovering/Resolving]
  - Weight decreased [Recovering/Resolving]

NARRATIVE: CASE EVENT DATE: 201507
